FAERS Safety Report 10016259 (Version 11)
Quarter: 2018Q4

REPORT INFORMATION
  Report Type: Report from Study
  Country: US (occurrence: US)
  Receive Date: 20140317
  Receipt Date: 20181005
  Transmission Date: 20190204
  Serious: Yes (Hospitalization, Other)
  Sender: FDA-Public Use
  Company Number: US-SANOFI-AVENTIS-2013SA086705

PATIENT
  Age: 38 Year
  Sex: Male

DRUGS (3)
  1. TERIFLUNOMIDE. [Suspect]
     Active Substance: TERIFLUNOMIDE
     Indication: MULTIPLE SCLEROSIS
     Dosage: 14 MG,QD
     Route: 048
     Dates: start: 20130621
  2. TERIFLUNOMIDE. [Suspect]
     Active Substance: TERIFLUNOMIDE
     Dosage: 14 MG, QD
     Dates: start: 20180803
  3. AMITRIPTYLINE [Concomitant]
     Active Substance: AMITRIPTYLINE
     Dosage: UNK

REACTIONS (25)
  - Feeling abnormal [Recovering/Resolving]
  - Asthenia [Recovered/Resolved]
  - Weight decreased [Not Recovered/Not Resolved]
  - Loss of consciousness [Unknown]
  - Multiple sclerosis relapse [Unknown]
  - Vertigo [Unknown]
  - Hypovitaminosis [Unknown]
  - Fatigue [Not Recovered/Not Resolved]
  - Paraesthesia [Recovered/Resolved]
  - Headache [Not Recovered/Not Resolved]
  - Alopecia [Recovered/Resolved]
  - Blood pressure increased [Recovering/Resolving]
  - Accident [Recovered/Resolved]
  - Multiple sclerosis relapse [Recovered/Resolved]
  - Stress [Not Recovered/Not Resolved]
  - Dizziness [Recovered/Resolved]
  - Alopecia [Unknown]
  - Depressed mood [Unknown]
  - Visual impairment [Unknown]
  - Hypoaesthesia [Recovered/Resolved]
  - Arthralgia [Unknown]
  - Pain in extremity [Unknown]
  - Migraine [Not Recovered/Not Resolved]
  - Memory impairment [Unknown]
  - Condition aggravated [Not Recovered/Not Resolved]

NARRATIVE: CASE EVENT DATE: 2014
